FAERS Safety Report 11563301 (Version 1)
Quarter: 2015Q3

REPORT INFORMATION
  Report Type: Spontaneous
  Country: US (occurrence: US)
  Receive Date: 20150916
  Receipt Date: 20150916
  Transmission Date: 20151125
  Serious: No
  Sender: FDA-Public Use
  Company Number: US-ELI_LILLY_AND_COMPANY-US200901004407

PATIENT
  Sex: Female

DRUGS (5)
  1. FORTEO [Suspect]
     Active Substance: TERIPARATIDE
     Dosage: 20 UG, DAILY (1/D)
     Dates: start: 200712
  2. CALCIUM [Concomitant]
     Active Substance: CALCIUM
  3. VITAMINS NOS [Concomitant]
     Active Substance: VITAMINS
  4. VITAMIN D [Concomitant]
     Active Substance: CHOLECALCIFEROL
  5. ALLEGRA [Concomitant]
     Active Substance: FEXOFENADINE HYDROCHLORIDE

REACTIONS (5)
  - Fall [Not Recovered/Not Resolved]
  - Injury [Not Recovered/Not Resolved]
  - Arthralgia [Not Recovered/Not Resolved]
  - Actinic keratosis [Recovered/Resolved]
  - Meniscus injury [Not Recovered/Not Resolved]

NARRATIVE: CASE EVENT DATE: 2008
